FAERS Safety Report 17130911 (Version 1)
Quarter: 2019Q4

REPORT INFORMATION
  Report Type: Spontaneous
  Country: US (occurrence: US)
  Receive Date: 20191209
  Receipt Date: 20191209
  Transmission Date: 20200122
  Serious: No
  Sender: FDA-Public Use
  Company Number: US-ROCHE-2403632

PATIENT
  Age: 4 Month

DRUGS (3)
  1. DIAZEPAM. [Suspect]
     Active Substance: DIAZEPAM
     Indication: MENINGITIS
     Route: 065
  2. DIPHENYLHYDANTOIN [PHENYTOIN] [Concomitant]
     Route: 042
  3. PHENOBARBITAL. [Concomitant]
     Active Substance: PHENOBARBITAL
     Route: 065

REACTIONS (1)
  - Respiratory disorder [Unknown]
